FAERS Safety Report 14303498 (Version 2)
Quarter: 2018Q4

REPORT INFORMATION
  Report Type: Spontaneous
  Country: US (occurrence: US)
  Receive Date: 20171219
  Receipt Date: 20181215
  Transmission Date: 20190204
  Serious: Yes (Other)
  Sender: FDA-Public Use
  Company Number: US-OTSUKA-2017_023230

PATIENT
  Sex: Female
  Weight: 106.12 kg

DRUGS (5)
  1. VIIBRYD [Concomitant]
     Active Substance: VILAZODONE HYDROCHLORIDE
     Indication: DEPRESSION
     Dosage: 1 DF, QD
     Route: 048
  2. VISTARIL [Concomitant]
     Active Substance: HYDROXYZINE PAMOATE
     Indication: PRODUCT USED FOR UNKNOWN INDICATION
     Dosage: 1 DF, TID
     Route: 048
  3. TOPAMAX [Concomitant]
     Active Substance: TOPIRAMATE
     Indication: MOOD SWINGS
     Dosage: 1 DF, BID
     Route: 048
  4. ATARAX [Concomitant]
     Active Substance: HYDROXYZINE HYDROCHLORIDE
     Indication: ANXIETY
     Dosage: 1 DF, TID
     Route: 065
  5. ABILIFY [Suspect]
     Active Substance: ARIPIPRAZOLE
     Indication: BIPOLAR DISORDER
     Dosage: 10 MG, QD
     Route: 065
     Dates: start: 2013, end: 2015

REACTIONS (20)
  - Eating disorder [Recovered/Resolved]
  - Sleep disorder [Unknown]
  - Economic problem [Unknown]
  - Brain injury [Unknown]
  - Cyclothymic disorder [Unknown]
  - Disturbance in attention [Unknown]
  - Gambling disorder [Recovered/Resolved]
  - Compulsive hoarding [Recovered/Resolved]
  - Injury [Unknown]
  - Aggression [Unknown]
  - Crying [Unknown]
  - Frustration tolerance decreased [Unknown]
  - Emotional distress [Unknown]
  - Asthenia [Unknown]
  - Mental disorder [Unknown]
  - Anger [Unknown]
  - Malaise [Unknown]
  - Anxiety [Unknown]
  - Compulsive shopping [Recovered/Resolved]
  - Irritability [Unknown]
